FAERS Safety Report 7580982-X (Version None)
Quarter: 2011Q2

REPORT INFORMATION
  Report Type: 
  Country: None (occurrence: None)
  Receive Date: 20110622
  Receipt Date: 20110610
  Transmission Date: 20111010
  Serious: Yes (Hospitalization)
  Sender: FDA-Public Use
  Company Number: 2011CP000113

PATIENT
  Age: 45 Year
  Sex: Female

DRUGS (4)
  1. TORADOL [Suspect]
     Indication: ANALGESIC THERAPY
     Dosage: 901 MG; 1 DAY; IV
     Route: 042
     Dates: start: 20110512, end: 20110513
  2. ENOXAPARIN SODIUM [Concomitant]
  3. AUGMENTIN [Suspect]
     Indication: ANTIBIOTIC THERAPY
     Dosage: 6.6 GM; 1 DAY; IV
     Route: 042
     Dates: start: 20110512
  4. PERFALGAN (PARACETAMOL) [Suspect]
     Indication: ANALGESIC THERAPY
     Dosage: 3 GM; ; IV
     Route: 042
     Dates: start: 20110512, end: 20110513

REACTIONS (3)
  - RENAL FAILURE ACUTE [None]
  - POSTOPERATIVE RENAL FAILURE [None]
  - HAEMATURIA [None]
